FAERS Safety Report 18635355 (Version 1)
Quarter: 2020Q4

REPORT INFORMATION
  Report Type: Spontaneous
  Country: US (occurrence: US)
  Receive Date: 20201218
  Receipt Date: 20201218
  Transmission Date: 20210114
  Serious: No
  Sender: FDA-Public Use
  Company Number: US-THERAPEUTICSMD-2020TMD03825

PATIENT
  Sex: Female
  Weight: 79.37 kg

DRUGS (6)
  1. GINKGO MAX [Concomitant]
     Dosage: UNK, 2X/DAY
  2. UNSPECIFIED SUPPLEMENTS [Concomitant]
  3. IMVEXXY [Suspect]
     Active Substance: ESTRADIOL
     Indication: VULVOVAGINAL DRYNESS
  4. UNSPECIFIED MEDICATIONS [Concomitant]
     Active Substance: UNSPECIFIED INGREDIENT
  5. IMVEXXY [Suspect]
     Active Substance: ESTRADIOL
     Indication: DYSPAREUNIA
     Dosage: 10 ?G, 2X/WEEK BEFORE BED (MONDAY AND THURSDAY)
     Route: 067
     Dates: start: 2019, end: 202008
  6. CEREFOLIN NAC [Concomitant]

REACTIONS (6)
  - Product dose omission issue [Recovered/Resolved]
  - Contraindicated product administered [Recovered/Resolved]
  - Off label use [Recovered/Resolved]
  - Amnesia [Recovering/Resolving]
  - Aphasia [Recovering/Resolving]
  - Product dispensing error [Recovered/Resolved]

NARRATIVE: CASE EVENT DATE: 2019
